FAERS Safety Report 4288685-4 (Version None)
Quarter: 2004Q1

REPORT INFORMATION
  Report Type: 
  Country: None (occurrence: None)
  Receive Date: 20040205
  Receipt Date: 20030912
  Transmission Date: 20041129
  Serious: Yes (Hospitalization)
  Sender: FDA-Public Use
  Company Number: F01200300962

PATIENT
  Age: 72 Year
  Sex: Female

DRUGS (10)
  1. (OXALIPLATIN) - SOLUTION - 85 MG/M2 [Suspect]
     Indication: COLORECTAL CANCER
     Dosage: 85 MG/M2 Q2W; INTRAVENOUS NOS
     Route: 042
     Dates: start: 20030904, end: 20030904
  2. FLUOROURACIL [Suspect]
     Dosage: 500 MG/M2 BOLUS OND1, D8 AND D15, Q4W; INTRAVENOUS  BOLUS A FEW MINUTES
     Route: 040
     Dates: start: 20030904, end: 20030904
  3. LEUCOVORIN) - SOLUTION - 20 MG/M2 [Suspect]
     Dosage: 20 MG/M2 ON D1, D8 AND D15, Q4W; INTRAVENOUS NOS
     Route: 042
     Dates: start: 20030904, end: 20030904
  4. OCTREOTIDE ACETATE [Concomitant]
  5. CODEINE PHOSPHATE [Concomitant]
  6. CALCITONIN-SALMON [Concomitant]
  7. LEVOTHYROXINE SODIUM [Concomitant]
  8. MEGESTROL ACETATE [Concomitant]
  9. PAROXETINE HCL [Concomitant]
  10. TEMAZEPAM [Concomitant]

REACTIONS (10)
  - ASTHENIA [None]
  - COLITIS [None]
  - DEHYDRATION [None]
  - HYPONATRAEMIA [None]
  - LEUKOPENIA [None]
  - NEUTROPENIA [None]
  - PARALYSIS [None]
  - POST PROCEDURAL DIARRHOEA [None]
  - POST PROCEDURAL NAUSEA [None]
  - POST PROCEDURAL VOMITING [None]
